FAERS Safety Report 23221383 (Version 1)
Quarter: 2023Q4

REPORT INFORMATION
  Report Type: Report from Study
  Country: BE (occurrence: BE)
  Receive Date: 20231123
  Receipt Date: 20231123
  Transmission Date: 20240110
  Serious: Yes (Hospitalization)
  Sender: FDA-Public Use
  Company Number: BE-ABBVIE-5508049

PATIENT
  Sex: Male
  Weight: 79 kg

DRUGS (8)
  1. CARBIDOPA\LEVODOPA [Suspect]
     Active Substance: CARBIDOPA\LEVODOPA
     Indication: Parkinson^s disease
     Dosage: MD: 5.8 ML, CD: 3.7 ML/H, ED: 2.2 ML, CND: 2.2 ML/H REMAINS AT 24 HOURS
     Route: 050
     Dates: start: 20230403, end: 20230622
  2. CARBIDOPA\LEVODOPA [Suspect]
     Active Substance: CARBIDOPA\LEVODOPA
     Dosage: MD: 4.8 ML, CD: 3.9 ML/H, ED: 2.3 ML REMAINS AT 16 HOURS
     Route: 050
     Dates: start: 20230622, end: 20230622
  3. CARBIDOPA\LEVODOPA [Suspect]
     Active Substance: CARBIDOPA\LEVODOPA
     Dosage: MD: 5.8 ML, CD: 3.9 ML/H, ED: 2.3 ML, CND: 2.2 ML/H REMAINS AT 16 HOURS
     Route: 050
     Dates: start: 20230918
  4. CARBIDOPA\LEVODOPA [Suspect]
     Active Substance: CARBIDOPA\LEVODOPA
     Dosage: MD: 4.8 ML, CD: 3.9 ML/H, ED: 2.3 ML REMAINS AT 16 HOURS
     Route: 050
     Dates: start: 20230622, end: 20230918
  5. FLUDROCORTISONE [Concomitant]
     Active Substance: FLUDROCORTISONE
     Indication: Product used for unknown indication
     Dosage: FORM STRENGTH: 02 MILLIGRAM
  6. BENSERAZIDE\LEVODOPA [Concomitant]
     Active Substance: BENSERAZIDE\LEVODOPA
     Indication: Product used for unknown indication
     Dosage: DISPERSIBLE/FORM STRENGTH: 125 UNKNOWN
  7. CARBIDOPA\ENTACAPONE\LEVODOPA [Concomitant]
     Active Substance: CARBIDOPA\ENTACAPONE\LEVODOPA
     Indication: Product used for unknown indication
     Dosage: FORM STRENGTH: 150 UNKNOWN
  8. AZILECT [Concomitant]
     Active Substance: RASAGILINE MESYLATE
     Indication: Product used for unknown indication
     Dosage: FORM STRENGTH: 1 MILLIGRAM

REACTIONS (3)
  - General physical health deterioration [Unknown]
  - Off label use [Unknown]
  - Device dislocation [Unknown]
